FAERS Safety Report 15983126 (Version 1)
Quarter: 2019Q1

REPORT INFORMATION
  Report Type: Spontaneous
  Country: US (occurrence: US)
  Receive Date: 20190216
  Receipt Date: 20190216
  Transmission Date: 20190418
  Serious: Yes (Other)
  Sender: FDA-Public Use
  Company Number: None

PATIENT
  Age: 39 Year
  Sex: Female
  Weight: 70.31 kg

DRUGS (1)
  1. NUVARING [Suspect]
     Active Substance: ETHINYL ESTRADIOL\ETONOGESTREL

REACTIONS (6)
  - Product formulation issue [None]
  - Hormone level abnormal [None]
  - Product complaint [None]
  - Menorrhagia [None]
  - Vaginal haemorrhage [None]
  - Migraine [None]

NARRATIVE: CASE EVENT DATE: 20190128
